FAERS Safety Report 24968931 (Version 1)
Quarter: 2025Q1

REPORT INFORMATION
  Report Type: Report from Study
  Country: US (occurrence: US)
  Receive Date: 20250214
  Receipt Date: 20250214
  Transmission Date: 20250409
  Serious: No
  Sender: AMNEAL
  Company Number: US-AMNEAL PHARMACEUTICALS-2024-AMRX-03748

PATIENT
  Sex: Female

DRUGS (3)
  1. CARBIDOPA\LEVODOPA [Suspect]
     Active Substance: CARBIDOPA\LEVODOPA
     Indication: Product used for unknown indication
     Dosage: 23.75-95MG 01 CAPSULE BY MOUTH THREE TIMES A DAY AT THE SAME TIME 48.75-195MG 02 CAPSULES THREE TIME
     Route: 048
  2. CARBIDOPA\LEVODOPA [Suspect]
     Active Substance: CARBIDOPA\LEVODOPA
     Dosage: 23.75-95 MG AND 48.75-195MG, BOTH 01 CAPSULES THREE TIMES DAILY
     Route: 048
  3. CARBIDOPA\LEVODOPA [Suspect]
     Active Substance: CARBIDOPA\LEVODOPA
     Dosage: 48.75-195 MG 02 CAPSULES THREE TIMES DAILY
     Route: 048
     Dates: start: 20240725

REACTIONS (2)
  - Memory impairment [Unknown]
  - Therapy interrupted [Unknown]
